FAERS Safety Report 7420612-0 (Version None)
Quarter: 2011Q2

REPORT INFORMATION
  Report Type: 
  Country: None (occurrence: None)
  Receive Date: 20110407
  Receipt Date: 20110324
  Transmission Date: 20111010
  Serious: Yes (Hospitalization, Other)
  Sender: FDA-Public Use
  Company Number: 2011P1005399

PATIENT
  Sex: Female

DRUGS (9)
  1. POTASSIUM [Concomitant]
  2. NEURONTIN [Concomitant]
  3. FENTANYL [Suspect]
     Indication: PAIN
     Dosage: Q72H; TDER
     Route: 062
     Dates: start: 20100201
  4. UNKNOWN ANESTHETIC AGENT(S) (NO PREF. NAME) [Suspect]
     Indication: ANAESTHESIA PROCEDURE
     Dates: start: 20101217, end: 20101217
  5. FENTANYL-75 [Suspect]
     Indication: PAIN
     Dosage: Q72H; TDER
     Route: 062
     Dates: start: 20100101, end: 20100301
  6. DILANTIN [Concomitant]
  7. FENTANYL [Suspect]
     Indication: PAIN
     Dosage: Q72H; TDER
     Route: 062
     Dates: start: 20091201, end: 20100101
  8. OXYCODONE [Concomitant]
  9. NARCO [Concomitant]

REACTIONS (6)
  - CONVULSION [None]
  - PAIN [None]
  - HUMERUS FRACTURE [None]
  - DRUG INEFFECTIVE [None]
  - ROTATOR CUFF REPAIR [None]
  - RASH [None]
